FAERS Safety Report 24134341 (Version 2)
Quarter: 2024Q3

REPORT INFORMATION
  Report Type: Spontaneous
  Country: CN (occurrence: CN)
  Receive Date: 20240725
  Receipt Date: 20240805
  Transmission Date: 20241017
  Serious: Yes (Hospitalization, Other)
  Sender: BRISTOL MYERS SQUIBB
  Company Number: CN-BRISTOL-MYERS SQUIBB COMPANY-2024-116385

PATIENT
  Age: 42 Year
  Sex: Female

DRUGS (3)
  1. THALIDOMIDE [Suspect]
     Active Substance: THALIDOMIDE
     Indication: Subacute cutaneous lupus erythematosus
     Route: 048
     Dates: start: 2021
  2. HYDROXYCHLOROQUINE SULFATE [Suspect]
     Active Substance: HYDROXYCHLOROQUINE SULFATE
     Indication: Subacute cutaneous lupus erythematosus
     Route: 048
     Dates: start: 2021
  3. METHYLPREDNISOLONE [Suspect]
     Active Substance: METHYLPREDNISOLONE
     Indication: Subacute cutaneous lupus erythematosus
     Route: 048
     Dates: start: 2021

REACTIONS (2)
  - Lepromatous leprosy [Recovering/Resolving]
  - Off label use [Unknown]

NARRATIVE: CASE EVENT DATE: 20231201
